FAERS Safety Report 11872429 (Version 1)
Quarter: 2015Q4

REPORT INFORMATION
  Report Type: Spontaneous
  Country: JP (occurrence: JP)
  Receive Date: 20151228
  Receipt Date: 20151228
  Transmission Date: 20160305
  Serious: Yes (Death)
  Sender: FDA-Public Use
  Company Number: JP-B.I. PHARMACEUTICALS,INC./RIDGEFIELD-2015-BI-32242NB

PATIENT
  Age: 36 Year
  Sex: Female

DRUGS (1)
  1. GILOTRIF [Suspect]
     Active Substance: AFATINIB
     Indication: LUNG ADENOCARCINOMA STAGE IV
     Dosage: 30 MG
     Route: 048
     Dates: start: 20140802, end: 201412

REACTIONS (6)
  - Malignant neoplasm progression [Fatal]
  - Drug eruption [Not Recovered/Not Resolved]
  - Dry skin [Unknown]
  - Purpura [Unknown]
  - Paronychia [Unknown]
  - Folliculitis [Unknown]

NARRATIVE: CASE EVENT DATE: 201410
